FAERS Safety Report 24427782 (Version 1)
Quarter: 2024Q4

REPORT INFORMATION
  Report Type: Spontaneous
  Country: BG (occurrence: BG)
  Receive Date: 20241011
  Receipt Date: 20241011
  Transmission Date: 20250115
  Serious: Yes (Hospitalization, Other)
  Sender: BRISTOL MYERS SQUIBB
  Company Number: BG-BRISTOL-MYERS SQUIBB COMPANY-2024-158592

PATIENT
  Age: 52 Year
  Sex: Female

DRUGS (2)
  1. OPDIVO [Suspect]
     Active Substance: NIVOLUMAB
     Indication: Renal cell carcinoma
     Dates: start: 202403, end: 202408
  2. YERVOY [Suspect]
     Active Substance: IPILIMUMAB
     Indication: Renal cell carcinoma
     Dates: start: 202403, end: 202408

REACTIONS (9)
  - Asthenia [Unknown]
  - Hypothyroidism [Unknown]
  - Hepatic enzyme increased [Unknown]
  - Hepatomegaly [Unknown]
  - Lymphadenopathy [Unknown]
  - Pleural effusion [Unknown]
  - Dyspepsia [Unknown]
  - Malignant neoplasm progression [Unknown]
  - Ascites [Unknown]

NARRATIVE: CASE EVENT DATE: 20240401
